FAERS Safety Report 6529327-4 (Version None)
Quarter: 2010Q1

REPORT INFORMATION
  Report Type: 
  Country: None (occurrence: None)
  Receive Date: 20100107
  Receipt Date: 20091229
  Transmission Date: 20100710
  Serious: No
  Sender: FDA-Public Use
  Company Number: PHEH2009US18442

PATIENT
  Sex: Female

DRUGS (6)
  1. TASIGNA [Suspect]
     Dosage: 400 MG, BID
  2. TRICOR [Concomitant]
  3. ALLEGRA [Concomitant]
  4. NEXIUM [Concomitant]
  5. ZOFRAN [Concomitant]
  6. COENZYME A [Concomitant]
     Indication: MUSCLE SPASMS

REACTIONS (3)
  - HEADACHE [None]
  - MADAROSIS [None]
  - PILOERECTION [None]
